FAERS Safety Report 10375370 (Version 2)
Quarter: 2014Q3

REPORT INFORMATION
  Report Type: Spontaneous
  Country: US (occurrence: US)
  Receive Date: 20140811
  Receipt Date: 20140910
  Transmission Date: 20150326
  Serious: Yes (Hospitalization)
  Sender: FDA-Public Use
  Company Number: US-BAYER-2014-117338

PATIENT
  Age: 27 Year
  Sex: Female
  Weight: 49.89 kg

DRUGS (2)
  1. MIRENA [Suspect]
     Active Substance: LEVONORGESTREL
     Indication: CONTRACEPTION
     Dosage: 20 MCG/24HR, CONT
     Route: 015
     Dates: start: 20071210, end: 20130201
  2. ORTHO EVRA [Concomitant]
     Active Substance: ETHINYL ESTRADIOL\NORELGESTROMIN

REACTIONS (7)
  - Device dislocation [Not Recovered/Not Resolved]
  - Emotional distress [Not Recovered/Not Resolved]
  - Injury [Not Recovered/Not Resolved]
  - Device difficult to use [None]
  - Pain [Not Recovered/Not Resolved]
  - Uterine perforation [Not Recovered/Not Resolved]
  - Device misuse [None]

NARRATIVE: CASE EVENT DATE: 20120815
